FAERS Safety Report 8354873 (Version 7)
Quarter: 2013Q4

REPORT INFORMATION
  Report Type: Spontaneous
  Country: US (occurrence: US)
  Receive Date: 20120125
  Receipt Date: 20131009
  Transmission Date: 20140711
  Serious: Yes (Other)
  Sender: FDA-Public Use
  Company Number: US-ROCHE-1033062

PATIENT
  Age: 64 Year
  Sex: Male

DRUGS (5)
  1. XOLAIR [Suspect]
     Indication: ASTHMA
     Route: 058
     Dates: start: 20110321
  2. XOLAIR [Suspect]
     Dosage: MOST RECENT DOSE ON 12/APR/2013
     Route: 058
     Dates: start: 20121017
  3. XOLAIR [Suspect]
     Route: 065
     Dates: start: 20130412
  4. XOLAIR [Suspect]
     Route: 065
     Dates: start: 20130909
  5. XOLAIR [Suspect]
     Route: 065
     Dates: start: 20131005

REACTIONS (9)
  - Atrial fibrillation [Unknown]
  - Dyspepsia [Unknown]
  - Hypertension [Not Recovered/Not Resolved]
  - Throat tightness [Unknown]
  - Dizziness [Unknown]
  - Malaise [Unknown]
  - Dyspnoea exertional [Unknown]
  - Drug ineffective [Unknown]
  - Heart rate increased [Recovered/Resolved]
